FAERS Safety Report 23304211 (Version 1)
Quarter: 2023Q4

REPORT INFORMATION
  Report Type: Other
  Country: None (occurrence: US)
  Receive Date: 20231218
  Receipt Date: 20231218
  Transmission Date: 20240110
  Serious: Yes (Other)
  Sender: FDA-Public Use
  Company Number: US-Appco Pharma LLC-2149469

PATIENT
  Age: 19 Year
  Sex: Female

DRUGS (1)
  1. ACETAZOLAMIDE [Suspect]
     Active Substance: ACETAZOLAMIDE
     Indication: Familial periodic paralysis
     Route: 065

REACTIONS (1)
  - Renal tubular acidosis [Unknown]
